FAERS Safety Report 23996459 (Version 1)
Quarter: 2024Q2

REPORT INFORMATION
  Report Type: Report from Study
  Country: BE (occurrence: BE)
  Receive Date: 20240620
  Receipt Date: 20240620
  Transmission Date: 20240716
  Serious: Yes (Hospitalization, Other)
  Sender: FDA-Public Use
  Company Number: BE-ROCHE-2831470

PATIENT
  Age: 77 Year
  Sex: Male
  Weight: 56 kg

DRUGS (62)
  1. PEMETREXED [Suspect]
     Active Substance: PEMETREXED
     Indication: Non-small cell lung cancer
     Dosage: 828 MILLIGRAM, Q3W
     Route: 042
     Dates: start: 20210408
  2. PEMETREXED [Suspect]
     Active Substance: PEMETREXED
     Dosage: 845 MILLIGRAM
     Route: 042
     Dates: start: 20210430
  3. PEMETREXED [Suspect]
     Active Substance: PEMETREXED
     Dosage: 809 MILLIGRAM
     Route: 042
     Dates: start: 20210618
  4. CARBOPLATIN [Suspect]
     Active Substance: CARBOPLATIN
     Indication: Non-small cell lung cancer
     Dosage: 340 MILLIGRAM, Q3W
     Route: 042
     Dates: start: 20210408
  5. CARBOPLATIN [Suspect]
     Active Substance: CARBOPLATIN
     Dosage: 342 MILLIGRAM
     Route: 042
     Dates: start: 20210430
  6. CARBOPLATIN [Suspect]
     Active Substance: CARBOPLATIN
     Dosage: 288 MILLIGRAM
     Route: 042
     Dates: start: 20210618
  7. SOLU-MEDROL [Concomitant]
     Active Substance: METHYLPREDNISOLONE SODIUM SUCCINATE
     Indication: Premedication
     Dosage: 40 MILLIGRAM
     Route: 065
     Dates: start: 20210408, end: 20210818
  8. PALONOSETRON HYDROCHLORIDE [Concomitant]
     Active Substance: PALONOSETRON HYDROCHLORIDE
     Indication: Premedication
     Dosage: 250 MICROGRAM
     Route: 065
     Dates: start: 20210408, end: 20210618
  9. FLAGYL [Concomitant]
     Active Substance: METRONIDAZOLE\METRONIDAZOLE HYDROCHLORIDE
     Indication: Clostridium difficile infection
     Dosage: 500 MILLIGRAM, TID (0.33 DAY)
     Route: 065
     Dates: start: 20210627, end: 20210701
  10. Microlax [Concomitant]
     Indication: Constipation
     Dosage: 5 MILLILITER
     Route: 065
     Dates: start: 20210412, end: 20210929
  11. LASIX [Concomitant]
     Active Substance: FUROSEMIDE
     Indication: Acute kidney injury
     Dosage: 20 MILLIGRAM
     Route: 065
     Dates: start: 20210627, end: 20210629
  12. ENOXAPARIN SODIUM [Concomitant]
     Active Substance: ENOXAPARIN SODIUM
     Indication: Deep vein thrombosis
     Dosage: UNK
     Route: 065
     Dates: start: 20211112, end: 20211118
  13. ENOXAPARIN SODIUM [Concomitant]
     Active Substance: ENOXAPARIN SODIUM
     Indication: Venous thrombosis
     Dosage: UNK
     Route: 065
     Dates: start: 20220305, end: 20220311
  14. ENOXAPARIN SODIUM [Concomitant]
     Active Substance: ENOXAPARIN SODIUM
     Dosage: 60 MILLIGRAM, QD
     Route: 065
     Dates: start: 20210521, end: 20210526
  15. ENOXAPARIN SODIUM [Concomitant]
     Active Substance: ENOXAPARIN SODIUM
     Dosage: UNK
     Route: 065
     Dates: start: 20211104, end: 20211109
  16. ENOXAPARIN SODIUM [Concomitant]
     Active Substance: ENOXAPARIN SODIUM
     Dosage: 60 MILLIGRAM, QD
     Route: 065
     Dates: start: 20210514, end: 20210520
  17. ENOXAPARIN SODIUM [Concomitant]
     Active Substance: ENOXAPARIN SODIUM
     Dosage: UNK
     Route: 065
     Dates: start: 20210705, end: 20210709
  18. ZOLPIDEM TARTRATE [Concomitant]
     Active Substance: ZOLPIDEM TARTRATE
     Indication: Insomnia
     Dosage: UNK
     Route: 065
     Dates: start: 20210627
  19. ELIQUIS [Concomitant]
     Active Substance: APIXABAN
     Indication: Deep vein thrombosis
     Dosage: 5 MILLIGRAM, BID (0.5 DAY)
     Route: 065
     Dates: start: 20210526, end: 20210626
  20. ELIQUIS [Concomitant]
     Active Substance: APIXABAN
     Indication: Embolic stroke
     Dosage: 10 MILLIGRAM, BID (0.5 DAY)
     Route: 065
     Dates: start: 20210526
  21. MOVICOL [Concomitant]
     Active Substance: POLYETHYLENE GLYCOL 3350\POTASSIUM CHLORIDE\SODIUM BICARBONATE\SODIUM CHLORIDE
     Indication: Constipation
     Dosage: 1 OTHER
     Route: 065
     Dates: start: 20210412, end: 20210929
  22. INNOHEP [Concomitant]
     Active Substance: TINZAPARIN SODIUM
     Indication: Thrombosis prophylaxis
     Dosage: DOSE 4600
     Route: 065
     Dates: start: 20220114, end: 20220304
  23. INNOHEP [Concomitant]
     Active Substance: TINZAPARIN SODIUM
     Indication: Venous thrombosis
     Dosage: UNK
     Route: 065
     Dates: start: 20220312
  24. INNOHEP [Concomitant]
     Active Substance: TINZAPARIN SODIUM
     Dosage: UNK
     Route: 065
     Dates: start: 20211118, end: 20220113
  25. INNOHEP [Concomitant]
     Active Substance: TINZAPARIN SODIUM
     Dosage: 4500 INTERNATIONAL UNIT
     Route: 065
     Dates: start: 20210709, end: 20211101
  26. MEDROL [Concomitant]
     Active Substance: METHYLPREDNISOLONE
     Dosage: 32 MILLIGRAM
     Route: 065
     Dates: start: 20210407, end: 20210620
  27. FENOTEROL HYDROBROMIDE [Concomitant]
     Active Substance: FENOTEROL HYDROBROMIDE
     Dosage: UNK
     Route: 065
     Dates: start: 20220308
  28. AMLODIPINE BESYLATE [Concomitant]
     Active Substance: AMLODIPINE BESYLATE
     Indication: Hypertension
     Dosage: UNK
     Route: 065
     Dates: start: 20210603
  29. TRAZODONE HYDROCHLORIDE [Concomitant]
     Active Substance: TRAZODONE HYDROCHLORIDE
     Dosage: 100 MILLIGRAM, QD
     Route: 065
     Dates: start: 20220209
  30. ASPIRIN [Concomitant]
     Active Substance: ASPIRIN
     Indication: Deep vein thrombosis
     Dosage: 80 MILLIGRAM, QD
     Route: 065
     Dates: start: 20210519, end: 20210628
  31. FOLIC ACID [Concomitant]
     Active Substance: FOLIC ACID
     Dosage: 0.4 MILLIGRAM, QD
     Route: 065
     Dates: start: 20210330
  32. CALCIUM CARBONATE\CHOLECALCIFEROL [Concomitant]
     Active Substance: CALCIUM CARBONATE\CHOLECALCIFEROL
     Indication: Decreased appetite
     Dosage: 1 DOSAGE FORM, QD
     Route: 065
     Dates: start: 20220308, end: 20220311
  33. CALCIUM CARBONATE\CHOLECALCIFEROL [Concomitant]
     Active Substance: CALCIUM CARBONATE\CHOLECALCIFEROL
     Dosage: 1 DOSAGE FORM, QD (1 TABLET)
     Route: 065
     Dates: start: 20210330, end: 20210929
  34. CEFEPIME HYDROCHLORIDE [Concomitant]
     Active Substance: CEFEPIME HYDROCHLORIDE
     Indication: Urinary tract infection
     Dosage: 1 GRAM, QD
     Route: 065
     Dates: start: 20211103, end: 20211104
  35. CEFEPIME HYDROCHLORIDE [Concomitant]
     Active Substance: CEFEPIME HYDROCHLORIDE
     Dosage: 2 GRAM, BID (0.5 DAY)
     Route: 065
     Dates: start: 20210701, end: 20210706
  36. FENTANYL [Concomitant]
     Active Substance: FENTANYL\FENTANYL CITRATE
     Dosage: UNK UNK, Q3D (DOSE:12 OTHER)
     Route: 065
     Dates: start: 20220223
  37. PERINDOPRIL [Concomitant]
     Active Substance: PERINDOPRIL
     Indication: Hypertension
     Dosage: UNK
     Route: 065
     Dates: start: 20210516, end: 20210527
  38. AMLODIPINE BESYLATE [Concomitant]
     Active Substance: AMLODIPINE BESYLATE
     Indication: Hypertension
     Dosage: 5 MILLIGRAM, BID
     Route: 065
     Dates: start: 20210514, end: 20210520
  39. AMLODIPINE BESYLATE [Concomitant]
     Active Substance: AMLODIPINE BESYLATE
     Dosage: 5 MILLIGRAM, QD
     Route: 065
     Dates: start: 20210430, end: 20210430
  40. AMLODIPINE BESYLATE [Concomitant]
     Active Substance: AMLODIPINE BESYLATE
     Dosage: 5 MILLIGRAM, BID
     Route: 065
     Dates: start: 20210525, end: 20210527
  41. OXYCODONE HYDROCHLORIDE [Concomitant]
     Active Substance: OXYCODONE HYDROCHLORIDE
     Dosage: 5 MILLIGRAM
     Route: 065
     Dates: start: 20220223
  42. Pantomed [Concomitant]
     Dosage: 40 MILLIGRAM
     Route: 065
     Dates: start: 20210520
  43. VANCOMYCIN [Concomitant]
     Active Substance: VANCOMYCIN
     Indication: Clostridium difficile infection
     Dosage: 125 MILLIGRAM, BID
     Route: 065
     Dates: start: 20210708, end: 20210711
  44. VANCOMYCIN [Concomitant]
     Active Substance: VANCOMYCIN
     Dosage: 125 MILLIGRAM, Q6H (0.25 DAY)
     Route: 065
     Dates: start: 20210701, end: 20210706
  45. VANCOMYCIN [Concomitant]
     Active Substance: VANCOMYCIN
     Dosage: 125 MILLIGRAM, QD
     Route: 065
     Dates: start: 20210712, end: 20210718
  46. VANCOMYCIN [Concomitant]
     Active Substance: VANCOMYCIN
     Dosage: 125 MILLIGRAM, TID
     Route: 065
     Dates: start: 20210707, end: 20210707
  47. AMLODIPINE [Concomitant]
     Active Substance: AMLODIPINE BESYLATE
     Indication: Hypertension
     Dosage: 5 MILLIGRAM, BID
     Route: 065
     Dates: start: 20210514, end: 20210520
  48. AMLODIPINE [Concomitant]
     Active Substance: AMLODIPINE BESYLATE
     Dosage: 5 MILLIGRAM, BID
     Route: 065
     Dates: start: 20210521, end: 20210524
  49. AMLODIPINE [Concomitant]
     Active Substance: AMLODIPINE BESYLATE
     Dosage: UNK
     Route: 065
     Dates: start: 20210525, end: 20210527
  50. TIRAGOLUMAB [Concomitant]
     Active Substance: TIRAGOLUMAB
     Indication: Non-small cell lung cancer
     Dosage: UNK
     Route: 065
  51. TIRAGOLUMAB [Concomitant]
     Active Substance: TIRAGOLUMAB
     Dosage: 600 MILLIGRAM, Q3W
     Route: 065
     Dates: start: 20210408
  52. TIRAGOLUMAB [Concomitant]
     Active Substance: TIRAGOLUMAB
     Dosage: UNK
     Route: 065
     Dates: start: 20210430
  53. TIRAGOLUMAB [Concomitant]
     Active Substance: TIRAGOLUMAB
     Dosage: UNK
     Route: 065
     Dates: start: 20210618
  54. TIRAGOLUMAB [Concomitant]
     Active Substance: TIRAGOLUMAB
     Dosage: UNK
     Route: 065
     Dates: start: 20211020
  55. ULTRA-K [Concomitant]
     Dosage: UNK
     Route: 065
     Dates: start: 20210628, end: 20210705
  56. DAFALGAN [Concomitant]
     Active Substance: ACETAMINOPHEN
     Dosage: 1 GRAM, Q6H
     Route: 065
     Dates: start: 20220223
  57. ATEZOLIZUMAB [Concomitant]
     Active Substance: ATEZOLIZUMAB
     Indication: Non-small cell lung cancer
     Dosage: UNK
     Route: 065
  58. ATEZOLIZUMAB [Concomitant]
     Active Substance: ATEZOLIZUMAB
     Dosage: 200 MILLILITER, Q3W
     Route: 065
     Dates: start: 20210408
  59. ATEZOLIZUMAB [Concomitant]
     Active Substance: ATEZOLIZUMAB
     Dosage: UNK
     Route: 065
     Dates: start: 20210430
  60. ATEZOLIZUMAB [Concomitant]
     Active Substance: ATEZOLIZUMAB
     Dosage: UNK
     Route: 065
     Dates: start: 20210618
  61. ATEZOLIZUMAB [Concomitant]
     Active Substance: ATEZOLIZUMAB
     Dosage: UNK
     Route: 065
     Dates: start: 20211020
  62. XGEVA [Concomitant]
     Active Substance: DENOSUMAB
     Dosage: 120 MILLIGRAM, MONTHLY
     Route: 065
     Dates: start: 20210329

REACTIONS (5)
  - General physical health deterioration [Recovered/Resolved]
  - Diverticulum [Recovered/Resolved]
  - Dyspnoea [Recovered/Resolved]
  - Type 2 diabetes mellitus [Not Recovered/Not Resolved]
  - Pneumonia [Recovered/Resolved]

NARRATIVE: CASE EVENT DATE: 20210514
